FAERS Safety Report 18667933 (Version 1)
Quarter: 2020Q4

REPORT INFORMATION
  Report Type: Other
  Country: JP (occurrence: JP)
  Receive Date: 20201228
  Receipt Date: 20201228
  Transmission Date: 20210114
  Serious: Yes (Other)
  Sender: FDA-Public Use
  Company Number: JP-ROCHE-2739624

PATIENT
  Age: 10 Year
  Sex: Female
  Weight: 31 kg

DRUGS (19)
  1. RITUXIMAB. [Suspect]
     Active Substance: RITUXIMAB
     Dosage: SUBSEQUENT DOSES OF RITUXIMAB WERE ADMINISTERED ON: 15/SEP/2016
     Route: 041
     Dates: start: 20160906
  2. RITUXIMAB. [Suspect]
     Active Substance: RITUXIMAB
     Dosage: RECEIVED THE 5TH CYCLE OF RITUXIMAB ON /FEB/2020
     Route: 041
     Dates: start: 201708
  3. D-CHLORPHENIRAMINE MALEATE [Concomitant]
     Active Substance: DEXCHLORPHENIRAMINE MALEATE
     Dosage: SUBSEQUENT DOSES WERE ADMINISTERED ON: 17/SEP/2015, 06/SEP/2016, 15/SEP/2016
     Route: 048
     Dates: start: 20150910
  4. PREDNISOLONE. [Concomitant]
     Active Substance: PREDNISOLONE
     Route: 048
     Dates: start: 20141119, end: 20150122
  5. PREDNISOLONE. [Concomitant]
     Active Substance: PREDNISOLONE
     Route: 048
     Dates: start: 20151124
  6. PREDNISOLONE. [Concomitant]
     Active Substance: PREDNISOLONE
     Route: 048
     Dates: start: 20160712
  7. D-CHLORPHENIRAMINE MALEATE [Concomitant]
     Active Substance: DEXCHLORPHENIRAMINE MALEATE
     Dosage: SUBSEQUENT DOSES WERE ADMINISTERED ON: 29/OCT/2014, 05/NOV/2014, 19/NOV/2014.
     Route: 048
     Dates: start: 20141022
  8. PREDNISOLONE. [Concomitant]
     Active Substance: PREDNISOLONE
     Indication: NEPHROTIC SYNDROME
     Route: 048
     Dates: start: 200909, end: 20141105
  9. RITUXIMAB. [Suspect]
     Active Substance: RITUXIMAB
     Indication: NEPHROTIC SYNDROME
     Dosage: SUBSEQUENT DOSES OF RITUXIMAB WERE ADMINISTERED ON: 29/OCT/2014, 05/NOV/2014, 19/NOV/2014, 10/SEP/20
     Route: 041
     Dates: start: 20141022
  10. ACETAMINOPHEN. [Concomitant]
     Active Substance: ACETAMINOPHEN
     Indication: PREMEDICATION
     Dosage: SUBSEQUENT DOSES WERE ADMINISTERED ON: 29/OCT/2014, 05/NOV/2014, 19/NOV/2014, 10/SEP/2015, 17/SEP/20
     Route: 048
     Dates: start: 20141022
  11. METHYLPREDNISOLONE SODIUM SUCCINATE. [Concomitant]
     Active Substance: METHYLPREDNISOLONE SODIUM SUCCINATE
     Dosage: SUBSEQUENT DOSES WERE ADMINISTERED ON: 17/SEP/2015, 06/SEP/2016, 15/SEP/2016
     Route: 042
     Dates: start: 20150910
  12. PREDNISOLONE. [Concomitant]
     Active Substance: PREDNISOLONE
     Route: 048
     Dates: start: 20150313, end: 20160813
  13. MYCOPHENOLATE MOFETIL. [Concomitant]
     Active Substance: MYCOPHENOLATE MOFETIL
     Indication: NEPHROTIC SYNDROME
     Route: 048
  14. BAKTAR [Concomitant]
     Active Substance: SULFAMETHOXAZOLE\TRIMETHOPRIM
     Route: 048
     Dates: start: 20150123, end: 20150609
  15. PREDNISOLONE. [Concomitant]
     Active Substance: PREDNISOLONE
     Route: 048
     Dates: start: 20141106, end: 20141118
  16. PREDNISOLONE. [Concomitant]
     Active Substance: PREDNISOLONE
     Route: 048
     Dates: start: 20160814
  17. METHYLPREDNISOLONE SODIUM SUCCINATE. [Concomitant]
     Active Substance: METHYLPREDNISOLONE SODIUM SUCCINATE
     Indication: PREMEDICATION
     Dosage: SUBSEQUENT DOSES WERE ADMINISTERED ON: 29/OCT/2014, 05/NOV/2014, 19/NOV/2014.
     Route: 042
     Dates: start: 20141022
  18. BAKTAR [Concomitant]
     Active Substance: SULFAMETHOXAZOLE\TRIMETHOPRIM
     Route: 048
     Dates: start: 20150910
  19. PREDNISOLONE. [Concomitant]
     Active Substance: PREDNISOLONE
     Route: 048
     Dates: start: 20150123, end: 20150312

REACTIONS (2)
  - Hypogammaglobulinaemia [Recovered/Resolved]
  - Agranulocytosis [Recovered/Resolved]

NARRATIVE: CASE EVENT DATE: 201702
